FAERS Safety Report 8130022-9 (Version None)
Quarter: 2012Q1

REPORT INFORMATION
  Report Type: 
  Country: None (occurrence: None)
  Receive Date: 20120210
  Receipt Date: 20120202
  Transmission Date: 20120608
  Serious: Yes (Hospitalization, Other)
  Sender: FDA-Public Use
  Company Number: US-ABBOTT-12P-163-0900693-00

PATIENT
  Age: 32 Year
  Sex: Female

DRUGS (2)
  1. HUMIRA [Suspect]
     Indication: CROHN'S DISEASE
     Route: 058
     Dates: start: 20070101, end: 20090801
  2. HUMIRA [Suspect]
     Route: 058
     Dates: start: 20111007

REACTIONS (10)
  - PAIN [None]
  - GASTROINTESTINAL INFLAMMATION [None]
  - FISTULA [None]
  - FEMALE GENITAL TRACT FISTULA [None]
  - COLITIS [None]
  - CROHN'S DISEASE [None]
  - DEFAECATION URGENCY [None]
  - TONSILLECTOMY [None]
  - DIARRHOEA [None]
  - HAEMATOCHEZIA [None]
